FAERS Safety Report 8923664 (Version 1)
Quarter: 2012Q4

REPORT INFORMATION
  Report Type: Spontaneous
  Country: US (occurrence: None)
  Receive Date: 20121109
  Receipt Date: 20121109
  Transmission Date: 20130627
  Serious: Yes (Hospitalization)
  Sender: FDA-Public Use
  Company Number: 2011S1000815

PATIENT
  Age: 66 Year
  Sex: Female
  Weight: 63.7 kg

DRUGS (13)
  1. CUBICIN [Suspect]
     Indication: IMPLANT INFECTION
     Route: 042
     Dates: start: 20111030, end: 20111109
  2. CADUET [Suspect]
     Indication: IMPLANT INFECTION
  3. LEXAPRO [Concomitant]
  4. XANAX [Concomitant]
  5. AMBIEN [Concomitant]
  6. SYNTHROID [Concomitant]
  7. VITAMIN B12 (CYANOCOBALAMIN AND DERIVATIVES) [Concomitant]
  8. VITAMIN D AND ANALOGUES [Concomitant]
  9. NORCO [Concomitant]
  10. LIDODERM [Concomitant]
  11. ACIPHEX [Concomitant]
  12. ZOFRAN [Concomitant]
  13. VANCOMYCIN [Concomitant]

REACTIONS (2)
  - Rhabdomyolysis [None]
  - Myopathy [None]
